FAERS Safety Report 6244056-2 (Version None)
Quarter: 2009Q2

REPORT INFORMATION
  Report Type: 
  Country: None (occurrence: None)
  Receive Date: 20090618
  Receipt Date: 20090403
  Transmission Date: 20091009
  Serious: No
  Sender: FDA-Public Use
  Company Number: 2009US000003

PATIENT
  Age: 73 Year
  Sex: Male
  Weight: 89 kg

DRUGS (4)
  1. ENTEREG [Suspect]
     Indication: POSTOPERATIVE ILEUS
     Dosage: 12 MG;BID;PO
     Route: 048
     Dates: start: 20090324, end: 20090326
  2. METOPROLOL TARTRATE [Concomitant]
  3. LOVENOX [Concomitant]
  4. EPIDURAL PAIN MEDICINE [Concomitant]

REACTIONS (5)
  - HYPERTENSION [None]
  - HYPOTENSION [None]
  - MENTAL STATUS CHANGES [None]
  - PYREXIA [None]
  - TACHYCARDIA [None]
